FAERS Safety Report 9168170 (Version 1)
Quarter: 2013Q1

REPORT INFORMATION
  Report Type: Spontaneous
  Country: US (occurrence: None)
  Receive Date: 20130225
  Receipt Date: 20130225
  Transmission Date: 20140127
  Serious: Yes (Other)
  Sender: FDA-Public Use
  Company Number: 2013034726

PATIENT
  Age: 75 Year
  Sex: Male

DRUGS (1)
  1. PRIVIGEN [Suspect]
     Indication: IMMUNODEFICIENCY
     Dosage: 160 OF 200 MLS INFUSED
     Route: 042
     Dates: start: 20130124

REACTIONS (8)
  - Anaphylactic reaction [None]
  - Hypoxia [None]
  - Chills [None]
  - Chills [None]
  - Rash [None]
  - Back pain [None]
  - Anxiety [None]
  - Blood pressure increased [None]
